FAERS Safety Report 6297614-3 (Version None)
Quarter: 2009Q3

REPORT INFORMATION
  Report Type: 
  Country: None (occurrence: None)
  Receive Date: 20090805
  Receipt Date: 20090727
  Transmission Date: 20100115
  Serious: Yes (Death, Other)
  Sender: FDA-Public Use
  Company Number: US-PFIZER INC-2009238488

PATIENT
  Sex: Male
  Weight: 107.95 kg

DRUGS (7)
  1. SUTENT [Suspect]
     Indication: GASTROINTESTINAL STROMAL TUMOUR
     Dosage: 50 MG, DAILY
     Route: 048
     Dates: start: 20090528
  2. ALPRAZOLAM [Concomitant]
  3. DILTIAZEM [Concomitant]
  4. EPROSARTAN [Concomitant]
  5. SIMVASTATIN [Concomitant]
  6. FISH OIL [Concomitant]
  7. GLUCOSAMINE [Concomitant]

REACTIONS (2)
  - PAIN IN EXTREMITY [None]
  - PERIPHERAL ISCHAEMIA [None]
